FAERS Safety Report 23340124 (Version 1)
Quarter: 2023Q4

REPORT INFORMATION
  Report Type: Spontaneous
  Country: US (occurrence: US)
  Receive Date: 20231227
  Receipt Date: 20231227
  Transmission Date: 20240109
  Serious: Yes (Disabling, Other)
  Sender: FDA-Public Use
  Company Number: US-CELLTRION INC.-2023US024395

PATIENT

DRUGS (2)
  1. INFLECTRA [Suspect]
     Active Substance: INFLIXIMAB-DYYB
     Indication: Colitis ulcerative
     Dosage: THREE LITTLE VIALS, UNKNOWN DOSE AND RECEIVED IT EVERY 8 WEEKS
     Dates: start: 20221118, end: 202309
  2. LIALDA [Concomitant]
     Active Substance: MESALAMINE
     Indication: Colitis ulcerative
     Dosage: 1.2 GRAM PER TABLET, FOUR A DAY ORALLY FOR FOUR PILLS A DAY
     Route: 048

REACTIONS (6)
  - Bone pain [Unknown]
  - Myalgia [Unknown]
  - Lupus-like syndrome [Unknown]
  - Condition aggravated [Unknown]
  - Pain [Unknown]
  - Drug ineffective [Unknown]
